FAERS Safety Report 11218251 (Version 1)
Quarter: 2015Q2

REPORT INFORMATION
  Report Type: Report from Study
  Country: CA (occurrence: CA)
  Receive Date: 20150625
  Receipt Date: 20150625
  Transmission Date: 20150821
  Serious: Yes (Hospitalization)
  Sender: FDA-Public Use
  Company Number: CA-JNJFOC-20150612475

PATIENT
  Age: 24 Year
  Sex: Female

DRUGS (1)
  1. STELARA [Suspect]
     Active Substance: USTEKINUMAB
     Indication: CROHN^S DISEASE
     Route: 058
     Dates: start: 20130814, end: 20150420

REACTIONS (4)
  - Colectomy total [Unknown]
  - Off label use [Unknown]
  - Treatment failure [Unknown]
  - Ileostomy [Unknown]

NARRATIVE: CASE EVENT DATE: 20150528
